FAERS Safety Report 13518068 (Version 1)
Quarter: 2017Q2

REPORT INFORMATION
  Report Type: Spontaneous
  Country: US (occurrence: US)
  Receive Date: 20170505
  Receipt Date: 20170505
  Transmission Date: 20170830
  Serious: No
  Sender: FDA-Public Use
  Company Number: US-GLAXOSMITHKLINE-US2017064805

PATIENT
  Sex: Female

DRUGS (4)
  1. FERROUS SULFATE. [Concomitant]
     Active Substance: FERROUS SULFATE
  2. CELEBREX [Concomitant]
     Active Substance: CELECOXIB
  3. PAROXETINE. [Concomitant]
     Active Substance: PAROXETINE
  4. ADVAIR DISKUS [Suspect]
     Active Substance: FLUTICASONE PROPIONATE\SALMETEROL XINAFOATE
     Indication: DYSPNOEA
     Dosage: 1 PUFF(S), BID
     Route: 055
     Dates: start: 201704

REACTIONS (6)
  - Cough [Not Recovered/Not Resolved]
  - Throat irritation [Not Recovered/Not Resolved]
  - Speech disorder [Not Recovered/Not Resolved]
  - Choking sensation [Not Recovered/Not Resolved]
  - Dysphonia [Not Recovered/Not Resolved]
  - Device use error [Unknown]
